FAERS Safety Report 4958508-6 (Version None)
Quarter: 2006Q1

REPORT INFORMATION
  Report Type: 
  Country: None (occurrence: None)
  Receive Date: 20060130
  Receipt Date: 20050531
  Transmission Date: 20060701
  Serious: Yes (Other)
  Sender: FDA-Public Use
  Company Number: 142245USA

PATIENT
  Age: 48 Year
  Sex: Male

DRUGS (1)
  1. COPAXONE [Suspect]
     Indication: MULTIPLE SCLEROSIS
     Dosage: MILLIGRAM QD SUBCUTANEOUS
     Route: 058
     Dates: start: 20031101

REACTIONS (2)
  - HERPES SIMPLEX OPHTHALMIC [None]
  - HERPES ZOSTER OPHTHALMIC [None]
